FAERS Safety Report 4452803-5 (Version None)
Quarter: 2004Q3

REPORT INFORMATION
  Report Type: 
  Country: None (occurrence: None)
  Receive Date: 20040916
  Receipt Date: 20040903
  Transmission Date: 20050211
  Serious: Yes (Hospitalization)
  Sender: FDA-Public Use
  Company Number: HQWYE558025AUG04

PATIENT
  Age: 71 Year
  Sex: Female

DRUGS (4)
  1. CORDARONE [Suspect]
     Indication: ATRIAL FIBRILLATION
     Dosage: 200 MG 2X PER 1 DAY ORAL
     Route: 048
     Dates: start: 20040504, end: 20040506
  2. CORDARONE [Suspect]
     Indication: ATRIAL FIBRILLATION
     Dosage: 200 MG 2X PER 1 DAY ORAL
     Route: 048
     Dates: start: 20040507, end: 20040807
  3. MARCUMAR [Suspect]
     Indication: ATRIAL FIBRILLATION
     Dosage: 3 MG, DOSE/FREQUENCY ORAL
     Route: 048
     Dates: end: 20040801
  4. LANOXIN [Concomitant]

REACTIONS (3)
  - PAIN OF SKIN [None]
  - PRURITUS GENERALISED [None]
  - VASCULITIS [None]
